FAERS Safety Report 10050095 (Version 1)
Quarter: 2014Q2

REPORT INFORMATION
  Report Type: Spontaneous
  Country: JP (occurrence: JP)
  Receive Date: 20140401
  Receipt Date: 20140401
  Transmission Date: 20141212
  Serious: Yes (Hospitalization)
  Sender: FDA-Public Use
  Company Number: JP-SA-2014SA033090

PATIENT
  Age: 64 Year
  Sex: Male

DRUGS (2)
  1. PLAVIX [Suspect]
     Indication: CORONARY ARTERY STENOSIS
     Route: 048
  2. COMPLAVIN [Suspect]
     Indication: CORONARY ARTERY STENOSIS
     Route: 048

REACTIONS (1)
  - Coronary artery restenosis [Recovered/Resolved]
